FAERS Safety Report 20602019 (Version 1)
Quarter: 2022Q1

REPORT INFORMATION
  Report Type: Spontaneous
  Country: US (occurrence: None)
  Receive Date: 20220315
  Receipt Date: 20220315
  Transmission Date: 20220423
  Serious: Yes (Other)
  Sender: FDA-Public Use
  Company Number: None

PATIENT
  Age: 59 Year
  Sex: Female
  Weight: 88.3 kg

DRUGS (4)
  1. NELARABINE [Suspect]
     Active Substance: NELARABINE
     Indication: Acute lymphocytic leukaemia
     Dosage: OTHER FREQUENCY : MWF X 3 DOSES;?
     Route: 042
     Dates: start: 20220307, end: 20220311
  2. nelarabine (Arranon) [Concomitant]
     Dates: start: 20220307, end: 20220307
  3. nelarabine (Arranon) [Concomitant]
     Dates: start: 20220309, end: 20220309
  4. nelarabine (Arranon) [Concomitant]
     Dates: start: 20220311, end: 20220311

REACTIONS (2)
  - Blood creatine phosphokinase increased [None]
  - Rhabdomyolysis [None]

NARRATIVE: CASE EVENT DATE: 20220314
